FAERS Safety Report 24705059 (Version 1)
Quarter: 2024Q4

REPORT INFORMATION
  Report Type: Spontaneous
  Country: ES (occurrence: ES)
  Receive Date: 20241206
  Receipt Date: 20241206
  Transmission Date: 20250115
  Serious: Yes (Hospitalization, Other)
  Sender: SANOFI AVENTIS
  Company Number: None

PATIENT
  Age: 78 Year
  Sex: Male
  Weight: 77.5 kg

DRUGS (2)
  1. ENOXAPARIN SODIUM [Suspect]
     Active Substance: ENOXAPARIN SODIUM
     Indication: Cardiac valve prosthesis user
     Dosage: 80 MG, Q12H
     Route: 058
     Dates: start: 20240904, end: 20240924
  2. SINTROM [Concomitant]
     Active Substance: ACENOCOUMAROL
     Indication: Cardiac valve prosthesis user
     Dosage: 14 MG, QW
     Route: 048
     Dates: start: 20160209, end: 20240904

REACTIONS (4)
  - Haematoma muscle [Recovering/Resolving]
  - Renal failure [Recovered/Resolved]
  - International normalised ratio increased [Recovered/Resolved]
  - Anaemia [Recovered/Resolved]

NARRATIVE: CASE EVENT DATE: 20240924
